FAERS Safety Report 9644304 (Version 2)
Quarter: 2014Q1

REPORT INFORMATION
  Report Type: Spontaneous
  Country: GB (occurrence: GB)
  Receive Date: 20131025
  Receipt Date: 20140306
  Transmission Date: 20141002
  Serious: Yes (Other)
  Sender: FDA-Public Use
  Company Number: GB-ASTRAZENECA-2013SE77041

PATIENT
  Age: 75 Year
  Sex: Female

DRUGS (9)
  1. ESOMEPRAZOLE [Suspect]
     Indication: BARRETT^S OESOPHAGUS
     Route: 048
     Dates: end: 20130904
  2. BISOPROLOL [Concomitant]
     Route: 048
  3. CANDESARTAN [Concomitant]
     Route: 048
  4. CLOPIDOGREL [Concomitant]
     Route: 048
  5. EZETIMIBE [Concomitant]
     Route: 048
  6. ISOSORBIDE MONONITRATE [Concomitant]
     Route: 048
  7. METFORMIN [Concomitant]
     Route: 048
  8. PARACETAMOL [Concomitant]
     Route: 048
  9. TRAMADOL [Concomitant]
     Route: 048

REACTIONS (3)
  - Hypocalcaemia [Recovering/Resolving]
  - Blood parathyroid hormone decreased [Recovering/Resolving]
  - Hypomagnesaemia [Recovering/Resolving]
